FAERS Safety Report 25219673 (Version 2)
Quarter: 2025Q3

REPORT INFORMATION
  Report Type: Spontaneous
  Country: US (occurrence: US)
  Receive Date: 20250421
  Receipt Date: 20250707
  Transmission Date: 20251021
  Serious: No
  Sender: CSL BEHRING
  Company Number: US-BEH-2025201889

PATIENT
  Sex: Female

DRUGS (12)
  1. HIZENTRA [Suspect]
     Active Substance: HUMAN IMMUNOGLOBULIN G
     Indication: Immunodeficiency common variable
     Dosage: 12 G (60ML), QW
     Route: 058
  2. HIZENTRA [Suspect]
     Active Substance: HUMAN IMMUNOGLOBULIN G
     Dosage: 12 G, QW
     Route: 058
  3. ACETAMINOPHEN [Concomitant]
     Active Substance: ACETAMINOPHEN
  4. CYCLOBENZAPRINE HYDROCHLORIDE [Concomitant]
     Active Substance: CYCLOBENZAPRINE HYDROCHLORIDE
  5. DULOXETINE HYDROCHLORIDE [Concomitant]
     Active Substance: DULOXETINE HYDROCHLORIDE
  6. FOLIC ACID [Concomitant]
     Active Substance: FOLIC ACID
  7. FUROSEMIDE [Concomitant]
     Active Substance: FUROSEMIDE
  8. GABAPENTIN [Concomitant]
     Active Substance: GABAPENTIN
  9. HYDROXYCHLOROQUINE SULFATE [Concomitant]
     Active Substance: HYDROXYCHLOROQUINE SULFATE
  10. Multi complete [Concomitant]
  11. POTASSIUM CHLORIDE [Concomitant]
     Active Substance: POTASSIUM CHLORIDE
  12. PREVACID [Concomitant]
     Active Substance: LANSOPRAZOLE

REACTIONS (2)
  - Cough [Recovered/Resolved]
  - Incorrect dose administered [Recovered/Resolved]
